FAERS Safety Report 4972670-0 (Version None)
Quarter: 2006Q1

REPORT INFORMATION
  Report Type: 
  Country: None (occurrence: None)
  Receive Date: 20060216
  Receipt Date: 20041018
  Transmission Date: 20060701
  Serious: Yes (Hospitalization)
  Sender: FDA-Public Use
  Company Number: 2002IM000914

PATIENT
  Age: 59 Year
  Sex: Female
  Weight: 56.3 kg

DRUGS (9)
  1. INTERFERON GAMMA-1B [Suspect]
     Indication: OVARIAN CANCER
     Dosage: 100 UG, TIW, SUBCUTANEOUS
     Route: 058
     Dates: start: 20021104, end: 20021122
  2. CARBOPLATIN [Suspect]
     Indication: OVARIAN CANCER
     Dosage: 740 MG, Q3W, INTRAVENOUS
     Route: 042
     Dates: start: 20021104, end: 20021104
  3. PACLITAXEL [Suspect]
     Indication: OVARIAN CANCER
     Dosage: 315 MG, Q3W, INTRAVENOUS
     Route: 042
     Dates: start: 20021104, end: 20021104
  4. ACETAMINOPHEN [Concomitant]
  5. IBUPROFEN [Concomitant]
  6. ONDANSETRON HCL [Concomitant]
  7. HYDROCODONE BITARTRATE + ACETAMINOPHEN [Concomitant]
  8. PEPCID [Concomitant]
  9. MAALOX FAST BLOCKER [Concomitant]

REACTIONS (4)
  - ABDOMINAL ABSCESS [None]
  - ACUTE PRERENAL FAILURE [None]
  - ANAEMIA [None]
  - INTESTINAL FISTULA [None]
